FAERS Safety Report 6401510-8 (Version None)
Quarter: 2009Q4

REPORT INFORMATION
  Report Type: 
  Country: None (occurrence: None)
  Receive Date: 20091015
  Receipt Date: 20091002
  Transmission Date: 20100525
  Serious: Yes (Other)
  Sender: FDA-Public Use
  Company Number: AT-GENENTECH-277635

PATIENT
  Sex: Male
  Weight: 70 kg

DRUGS (2)
  1. RANIBIZUMAB [Suspect]
     Indication: MACULAR DEGENERATION
     Dosage: UNK
     Route: 031
     Dates: start: 20080116
  2. VERTEPORFIN VS. PLACEBO [Suspect]
     Indication: MACULAR DEGENERATION
     Dosage: UNK
     Dates: start: 20080116

REACTIONS (2)
  - INTRAOCULAR PRESSURE INCREASED [None]
  - RETINAL ARTERY OCCLUSION [None]
